FAERS Safety Report 4691877-3 (Version None)
Quarter: 2005Q2

REPORT INFORMATION
  Report Type: 
  Country: None (occurrence: None)
  Receive Date: 20050614
  Receipt Date: 20050614
  Transmission Date: 20051028
  Serious: No
  Sender: FDA-Public Use
  Company Number: None

PATIENT
  Age: 69 Year
  Sex: Male
  Weight: 92.9874 kg

DRUGS (1)
  1. VIAGRA [Suspect]
     Indication: ERECTILE DYSFUNCTION
     Dosage: 1 TABLET BY MOUTH  1 HR PRIOR
     Route: 048
     Dates: start: 19980421, end: 20050523

REACTIONS (2)
  - OPTIC NERVE DISORDER [None]
  - TRANSIENT ISCHAEMIC ATTACK [None]
